FAERS Safety Report 25367751 (Version 2)
Quarter: 2025Q2

REPORT INFORMATION
  Report Type: Spontaneous
  Country: FR (occurrence: FR)
  Receive Date: 20250528
  Receipt Date: 20250630
  Transmission Date: 20250717
  Serious: Yes (Hospitalization)
  Sender: BAXTER
  Company Number: None

PATIENT
  Age: 66 Year
  Sex: Male
  Weight: 59 kg

DRUGS (3)
  1. CYCLOPHOSPHAMIDE [Suspect]
     Active Substance: CYCLOPHOSPHAMIDE
     Indication: Encephalitis autoimmune
     Route: 042
     Dates: start: 20250305
  2. BACTRIM [Suspect]
     Active Substance: SULFAMETHOXAZOLE\TRIMETHOPRIM
     Indication: Prophylaxis
     Dosage: 3 DOSAGE FORM, 1X A WEEK
     Route: 048
     Dates: start: 20250411
  3. VALACYCLOVIR HYDROCHLORIDE [Suspect]
     Active Substance: VALACYCLOVIR HYDROCHLORIDE
     Indication: Prophylaxis
     Dosage: 2 DOSAGE FORM, QD, 1 DAY
     Route: 048
     Dates: start: 20250411

REACTIONS (2)
  - Vertigo [Recovering/Resolving]
  - Asthenia [Recovering/Resolving]

NARRATIVE: CASE EVENT DATE: 20250410
